FAERS Safety Report 6697565-6 (Version None)
Quarter: 2010Q2

REPORT INFORMATION
  Report Type: 
  Country: None (occurrence: None)
  Receive Date: 20100426
  Receipt Date: 20100209
  Transmission Date: 20101027
  Serious: No
  Sender: FDA-Public Use
  Company Number: US-ABBOTT-10P-163-0625710-00

PATIENT
  Sex: Male
  Weight: 108.96 kg

DRUGS (4)
  1. AZMACORT [Suspect]
     Indication: ASTHMA
     Dates: end: 20100131
  2. FLOVENT [Concomitant]
     Indication: ASTHMA
     Dates: start: 20100131
  3. SINGULAIR [Concomitant]
     Indication: ASTHMA
  4. SINGULAIR [Concomitant]
     Indication: HYPERSENSITIVITY

REACTIONS (5)
  - COUGH [None]
  - FEELING ABNORMAL [None]
  - NASOPHARYNGITIS [None]
  - PARANASAL SINUS HYPERSECRETION [None]
  - SENSORY DISTURBANCE [None]
